FAERS Safety Report 12376409 (Version 2)
Quarter: 2016Q2

REPORT INFORMATION
  Report Type: Report from Study
  Country: BE (occurrence: BE)
  Receive Date: 20160517
  Receipt Date: 20160608
  Transmission Date: 20160815
  Serious: Yes (Hospitalization)
  Sender: FDA-Public Use
  Company Number: BE-BIOGEN-2016BI00236606

PATIENT
  Age: 39 Year
  Sex: Female

DRUGS (5)
  1. RIVOTRIL [Concomitant]
     Active Substance: CLONAZEPAM
     Indication: PAIN
     Route: 048
  2. FLUOXETINE EG [Concomitant]
     Indication: ANTIDEPRESSANT THERAPY
     Route: 048
  3. TYSABRI [Suspect]
     Active Substance: NATALIZUMAB
     Indication: MULTIPLE SCLEROSIS
     Route: 042
     Dates: start: 20121005
  4. ALGOTRA [Concomitant]
     Indication: ANALGESIC THERAPY
     Dosage: 325MG/37.5
     Route: 048
  5. TEGRETOL [Concomitant]
     Active Substance: CARBAMAZEPINE
     Indication: NEURALGIA
     Route: 048

REACTIONS (1)
  - Intervertebral disc protrusion [Recovered/Resolved]

NARRATIVE: CASE EVENT DATE: 20160322
